FAERS Safety Report 9476556 (Version 1)
Quarter: 2013Q3

REPORT INFORMATION
  Report Type: Spontaneous
  Country: FR (occurrence: FR)
  Receive Date: 20130826
  Receipt Date: 20130826
  Transmission Date: 20140515
  Serious: Yes (Death)
  Sender: FDA-Public Use
  Company Number: FR-TEVA-427081ISR

PATIENT
  Age: 80 Year
  Sex: Female

DRUGS (11)
  1. AMOXICILLIN TEVA [Suspect]
     Indication: LUNG DISORDER
     Dosage: 2 GRAM DAILY;
     Route: 048
     Dates: start: 20130520, end: 20130523
  2. AUGMENTIN [Suspect]
     Indication: LUNG DISORDER
     Route: 048
     Dates: end: 20130523
  3. AZANTAC [Concomitant]
  4. KARDEGIC [Concomitant]
  5. CARDENSIEL [Concomitant]
  6. CALDINE [Concomitant]
  7. MIMPARA [Concomitant]
  8. TARDYFERON [Concomitant]
  9. UNALFA [Concomitant]
  10. RENVELA [Concomitant]
  11. AMLOR [Concomitant]

REACTIONS (2)
  - Convulsion [Fatal]
  - Encephalopathy [Fatal]
